FAERS Safety Report 5228550-9 (Version None)
Quarter: 2007Q1

REPORT INFORMATION
  Report Type: 
  Country: None (occurrence: None)
  Receive Date: 20070205
  Receipt Date: 20070124
  Transmission Date: 20070707
  Serious: Yes (Disabling)
  Sender: FDA-Public Use
  Company Number: PHNR2006AU01574

PATIENT
  Age: 54 Year
  Sex: Female

DRUGS (3)
  1. FAMVIR [Suspect]
     Indication: HERPES ZOSTER
     Dosage: 250 MG, TID
     Route: 048
     Dates: start: 20061115, end: 20061118
  2. VITAMIN CAP [Concomitant]
     Dosage: DAILY
  3. CALCIUM [Concomitant]
     Dosage: DAILY

REACTIONS (2)
  - HEADACHE [None]
  - MUSCLE SPASMS [None]
